FAERS Safety Report 23217938 (Version 1)
Quarter: 2023Q4

REPORT INFORMATION
  Report Type: Report from Study
  Country: FR (occurrence: FR)
  Receive Date: 20231122
  Receipt Date: 20231122
  Transmission Date: 20240110
  Serious: Yes (Hospitalization, Other)
  Sender: FDA-Public Use
  Company Number: FR-MYLANLABS-2023M1123270

PATIENT
  Age: 19 Year
  Sex: Male

DRUGS (4)
  1. DEXAMETHASONE [Suspect]
     Active Substance: DEXAMETHASONE
     Indication: T-cell type acute leukaemia
     Dosage: 20 MILLIGRAM, QD (ADMINISTERED FROM DAYS 1-4 AND THEN DAYS 15-18)
     Route: 065
  2. VENETOCLAX [Suspect]
     Active Substance: VENETOCLAX
     Indication: T-cell type acute leukaemia
     Dosage: 200 MILLIGRAM, QD
     Route: 065
  3. PEG/L-ASPARAGINASE [Suspect]
     Active Substance: PEGASPARGASE
     Indication: T-cell type acute leukaemia
     Dosage: UNK, QD (ADMINISTERED 2500 IU/M 2 ON DAYS 2 AND 16)
     Route: 042
  4. VINCRISTINE [Suspect]
     Active Substance: VINCRISTINE
     Indication: T-cell type acute leukaemia
     Dosage: 1.4 MILLIGRAM/SQ. METER, QW
     Route: 065

REACTIONS (2)
  - Pneumonia [Unknown]
  - Tumour lysis syndrome [Unknown]
